FAERS Safety Report 15917174 (Version 1)
Quarter: 2019Q1

REPORT INFORMATION
  Report Type: Spontaneous
  Country: DE (occurrence: DE)
  Receive Date: 20190205
  Receipt Date: 20190205
  Transmission Date: 20190417
  Serious: Yes (Other)
  Sender: FDA-Public Use
  Company Number: DE-ACCORD-105349

PATIENT
  Age: 1 Day
  Sex: Male
  Weight: 2.51 kg

DRUGS (4)
  1. FEMIBION [CALCIUM PHOSPHATE DIBASIC\FERROUS SUCCINATE\MAGNESIUM HYDROXIDE] [Concomitant]
     Active Substance: CALCIUM PHOSPHATE, DIBASIC, ANHYDROUS\FERROUS SUCCINATE\MAGNESIUM HYDROXIDE
     Indication: PROPHYLAXIS OF NEURAL TUBE DEFECT
     Dosage: 0.8 MG/D
     Route: 064
     Dates: start: 20170121, end: 20171102
  2. LEVOTHYROXINE. [Concomitant]
     Active Substance: LEVOTHYROXINE
     Indication: HYPOTHYROIDISM
     Dosage: 100 /MCGD / INITIAL 75MCG/D, DOSAGE INCREASE TO 100MCG/D FROM WEEK 34+2
     Route: 064
  3. VACCINE FLU [Concomitant]
     Indication: IMMUNISATION
     Route: 064
  4. ESCITALOPRAM [Suspect]
     Active Substance: ESCITALOPRAM OXALATE
     Indication: DEPRESSION
     Dosage: 10 MG/D
     Route: 064
     Dates: start: 20170121, end: 20170811

REACTIONS (3)
  - Hypotonia neonatal [Recovered/Resolved]
  - Small for dates baby [Recovered/Resolved]
  - Myoclonus [Unknown]

NARRATIVE: CASE EVENT DATE: 20171102
